FAERS Safety Report 15597928 (Version 1)
Quarter: 2018Q4

REPORT INFORMATION
  Report Type: Spontaneous
  Country: US (occurrence: US)
  Receive Date: 20181102
  Receipt Date: 20181102
  Transmission Date: 20190205
  Serious: Yes (Hospitalization)
  Sender: FDA-Public Use
  Company Number: None

PATIENT
  Age: 77 Year
  Sex: Female

DRUGS (1)
  1. REBIF [Suspect]
     Active Substance: INTERFERON BETA-1A
     Indication: MULTIPLE SCLEROSIS
     Dosage: ?          OTHER DOSE:44;?
     Route: 058
     Dates: start: 20180202, end: 20181020

REACTIONS (5)
  - Musculoskeletal stiffness [None]
  - Fatigue [None]
  - Wrong technique in product usage process [None]
  - Multiple sclerosis relapse [None]
  - Gait disturbance [None]
